FAERS Safety Report 6617182-3 (Version None)
Quarter: 2010Q1

REPORT INFORMATION
  Report Type: 
  Country: None (occurrence: None)
  Receive Date: 20100307
  Receipt Date: 20081028
  Transmission Date: 20100710
  Serious: No
  Sender: FDA-Public Use
  Company Number: US-BAYER-200833211NA

PATIENT
  Age: 61 Year
  Sex: Male
  Weight: 65 kg

DRUGS (7)
  1. NEXAVAR [Suspect]
     Indication: PANCREATIC CARCINOMA
     Dosage: TOTAL DAILY DOSE: 800 MG  UNIT DOSE: 200 MG
     Route: 048
     Dates: start: 20080902, end: 20080908
  2. REGLAN [Concomitant]
     Dosage: TOTAL DAILY DOSE: 40 MG
     Route: 048
     Dates: start: 20080601, end: 20080908
  3. COMPAZINE [Concomitant]
     Dosage: QID PRN
     Route: 048
     Dates: start: 20080827, end: 20080908
  4. NEXIUM [Concomitant]
     Dosage: TOTAL DAILY DOSE: 40 MG
     Route: 048
  5. AMBIEN CR [Concomitant]
     Dosage: TOTAL DAILY DOSE: 12.5 MG
     Route: 048
     Dates: start: 20080905
  6. COUMADIN [Concomitant]
     Dosage: TOTAL DAILY DOSE: 5 MG
  7. NORCO [Concomitant]

REACTIONS (4)
  - ABDOMINAL PAIN UPPER [None]
  - HYPOPHAGIA [None]
  - PANCREATIC CARCINOMA [None]
  - PARKINSON'S DISEASE [None]
